FAERS Safety Report 18733915 (Version 2)
Quarter: 2021Q1

REPORT INFORMATION
  Report Type: Spontaneous
  Country: FR (occurrence: FR)
  Receive Date: 20210113
  Receipt Date: 20210331
  Transmission Date: 20210419
  Serious: Yes (Hospitalization, Other)
  Sender: FDA-Public Use
  Company Number: FR-SA-2021SA007913

PATIENT
  Age: 66 Year
  Sex: Male
  Weight: 82 kg

DRUGS (7)
  1. CEFIXIME. [Concomitant]
     Active Substance: CEFIXIME
     Indication: ANTIBIOTIC THERAPY
     Dosage: UNK
     Dates: start: 20200905, end: 20201024
  2. LACTIBIANE [Concomitant]
     Dosage: 1 DF, QD
  3. LEVOFLOXACIN. [Concomitant]
     Active Substance: LEVOFLOXACIN
     Indication: ANTIBIOTIC THERAPY
     Dosage: UNK
     Dates: start: 20200905, end: 20201024
  4. LOVENOX [Suspect]
     Active Substance: ENOXAPARIN SODIUM
     Dosage: 0.4 ML, QD
     Dates: start: 20200625, end: 20201111
  5. LEVOFLOXACIN. [Concomitant]
     Active Substance: LEVOFLOXACIN
     Dosage: 0.5 DF, QD (IN THE MORNING DURING BREAKFAST
     Dates: end: 20201020
  6. RIFAMPICIN [Concomitant]
     Active Substance: RIFAMPIN
     Indication: ANTIBIOTIC THERAPY
     Dosage: UNK
     Dates: start: 20200905, end: 20201024
  7. DOLIPRANE [Concomitant]
     Active Substance: ACETAMINOPHEN
     Dosage: 2 DF, QID

REACTIONS (8)
  - Meningorrhagia [Unknown]
  - Headache [Unknown]
  - Near death experience [Unknown]
  - Scar [Recovered/Resolved]
  - Infection [Unknown]
  - Meningitis [Unknown]
  - Subdural haematoma [Unknown]
  - Injury [Unknown]

NARRATIVE: CASE EVENT DATE: 20200905
